FAERS Safety Report 20776453 (Version 1)
Quarter: 2022Q2

REPORT INFORMATION
  Report Type: Spontaneous
  Country: BE (occurrence: BE)
  Receive Date: 20220502
  Receipt Date: 20220502
  Transmission Date: 20220720
  Serious: Yes (Death, Other)
  Sender: FDA-Public Use
  Company Number: BE-UCBSA-2022024732

PATIENT

DRUGS (1)
  1. LEVETIRACETAM [Suspect]
     Active Substance: LEVETIRACETAM
     Indication: Seizure
     Dosage: UNKNOWN DOSE

REACTIONS (5)
  - Cardiac arrest [Fatal]
  - Seizure [Unknown]
  - Microencephaly [Unknown]
  - Multiple-drug resistance [Unknown]
  - Off label use [Unknown]
